FAERS Safety Report 15318611 (Version 1)
Quarter: 2018Q3

REPORT INFORMATION
  Report Type: Spontaneous
  Country: US (occurrence: US)
  Receive Date: 20180817
  Receipt Date: 20180817
  Transmission Date: 20181010
  Serious: Yes (Hospitalization)
  Sender: FDA-Public Use
  Company Number: None

PATIENT
  Age: 71 Year
  Sex: Female
  Weight: 62.3 kg

DRUGS (8)
  1. NEOSPORIN [Concomitant]
     Active Substance: BACITRACIN ZINC\NEOMYCIN SULFATE\POLYMYXIN B SULFATE
  2. BAG BALM [Concomitant]
     Active Substance: OXYQUINOLINE SULFATE
  3. FOLIC ACID. [Concomitant]
     Active Substance: FOLIC ACID
  4. CORTISONE CREAM [Concomitant]
     Active Substance: HYDROCORTISONE
  5. REGORAFINIB [Suspect]
     Active Substance: REGORAFENIB
     Indication: COLON CANCER
     Route: 048
     Dates: start: 20180426, end: 20180718
  6. SENNA [Concomitant]
     Active Substance: SENNA LEAF\SENNOSIDES\SENNOSIDES A AND B
  7. PROTONIX [Concomitant]
     Active Substance: PANTOPRAZOLE SODIUM
  8. CARDIZEM [Concomitant]
     Active Substance: DILTIAZEM HYDROCHLORIDE

REACTIONS (2)
  - Jaundice [None]
  - Fatigue [None]

NARRATIVE: CASE EVENT DATE: 20180816
